FAERS Safety Report 6843071-5 (Version None)
Quarter: 2010Q3

REPORT INFORMATION
  Report Type: 
  Country: None (occurrence: None)
  Receive Date: 20100715
  Receipt Date: 20090721
  Transmission Date: 20110219
  Serious: Yes (Hospitalization)
  Sender: FDA-Public Use
  Company Number: US-ASTRAZENECA-2010SE32543

PATIENT
  Age: 633 Month
  Sex: Female
  Weight: 71.2 kg

DRUGS (6)
  1. SEROQUEL [Suspect]
     Route: 048
     Dates: start: 20020207
  2. BUSPIRONE [Concomitant]
     Dates: start: 20020322
  3. DEPAKOTE [Concomitant]
     Dates: start: 20020207
  4. TRAZODONE HYDROCHLORIDE [Concomitant]
     Dates: start: 20020207
  5. FLUOXETINE HCL [Concomitant]
     Dates: start: 20020322
  6. SYNTHROID [Concomitant]
     Dates: start: 20040329

REACTIONS (14)
  - BIPOLAR DISORDER [None]
  - CORONARY ARTERY DISEASE [None]
  - DEPRESSION [None]
  - HAEMOTHORAX [None]
  - HEPATITIS C [None]
  - HYPOTHYROIDISM [None]
  - LEFT ATRIAL DILATATION [None]
  - MENTAL DISORDER [None]
  - MUSCULOSKELETAL DISCOMFORT [None]
  - MYOCARDIAL INFARCTION [None]
  - OBESITY [None]
  - ROAD TRAFFIC ACCIDENT [None]
  - TYPE 2 DIABETES MELLITUS [None]
  - UPPER LIMB FRACTURE [None]
